FAERS Safety Report 24121654 (Version 1)
Quarter: 2024Q3

REPORT INFORMATION
  Report Type: Spontaneous
  Country: US (occurrence: None)
  Receive Date: 20240720
  Receipt Date: 20240720
  Transmission Date: 20241017
  Serious: Yes (Disabling, Other)
  Sender: Public
  Company Number: None

PATIENT
  Age: 73 Year
  Sex: Female
  Weight: 68.4 kg

DRUGS (14)
  1. PROLIA [Suspect]
     Active Substance: DENOSUMAB
     Indication: Drug therapy
     Dates: start: 20240405, end: 20240405
  2. CARVEDILOL [Concomitant]
     Active Substance: CARVEDILOL
  3. melixetine [Concomitant]
  4. BUMEX [Concomitant]
     Active Substance: BUMETANIDE
  5. BACLOFEN [Concomitant]
     Active Substance: BACLOFEN
  6. melexicam [Concomitant]
  7. BUPROPION [Concomitant]
     Active Substance: BUPROPION
  8. PRAVASTATIN [Concomitant]
     Active Substance: PRAVASTATIN
  9. MULTI [Concomitant]
  10. boitin [Concomitant]
  11. VITAMIN D3 [Concomitant]
     Active Substance: CHOLECALCIFEROL
  12. METHYLCOBALAMIN [Concomitant]
     Active Substance: METHYLCOBALAMIN
  13. IBUPROFEN [Concomitant]
     Active Substance: IBUPROFEN
  14. Luten [Concomitant]

REACTIONS (7)
  - Joint swelling [None]
  - Arthropathy [None]
  - Gait inability [None]
  - Joint swelling [None]
  - Peripheral swelling [None]
  - Blood pressure decreased [None]
  - Therapeutic product effect incomplete [None]

NARRATIVE: CASE EVENT DATE: 20240501
